FAERS Safety Report 21756940 (Version 1)
Quarter: 2022Q4

REPORT INFORMATION
  Report Type: Spontaneous
  Country: DE (occurrence: None)
  Receive Date: 20221220
  Receipt Date: 20221220
  Transmission Date: 20230113
  Serious: Yes (Death, Other)
  Sender: FDA-Public Use
  Company Number: 2022A410126

PATIENT
  Sex: Female

DRUGS (1)
  1. ANDEXANET ALFA [Suspect]
     Active Substance: ANDEXANET ALFA
     Dosage: UNKNOWN
     Route: 040

REACTIONS (3)
  - Death [Fatal]
  - Gastrointestinal haemorrhage [Unknown]
  - Renal artery stenosis [Unknown]
